FAERS Safety Report 8338198-5 (Version None)
Quarter: 2012Q2

REPORT INFORMATION
  Report Type: 
  Country: None (occurrence: None)
  Receive Date: 20120504
  Receipt Date: 20120502
  Transmission Date: 20120825
  Serious: Yes (Hospitalization)
  Sender: FDA-Public Use
  Company Number: GB-AMGEN-GBRSP2012027847

PATIENT
  Sex: Female

DRUGS (5)
  1. CYCLOPHOSPHAMIDE [Concomitant]
     Indication: BREAST CANCER
  2. NEULASTA [Suspect]
     Indication: BREAST CANCER
     Dosage: 6 MG, UNK
     Route: 058
  3. FLUOROURACIL [Concomitant]
     Indication: BREAST CANCER
  4. EPIRUBICIN [Concomitant]
     Indication: BREAST CANCER
  5. TAXOTERE [Concomitant]
     Indication: BREAST CANCER

REACTIONS (1)
  - NEUTROPENIA [None]
